FAERS Safety Report 5424577-2 (Version None)
Quarter: 2007Q3

REPORT INFORMATION
  Report Type: 
  Country: None (occurrence: None)
  Receive Date: 20070822
  Receipt Date: 20070817
  Transmission Date: 20080115
  Serious: Yes (Hospitalization, Other)
  Sender: FDA-Public Use
  Company Number: 017355

PATIENT
  Sex: Male
  Weight: 95.2 kg

DRUGS (6)
  1. ADDERALL 10 [Suspect]
     Indication: ATTENTION DEFICIT/HYPERACTIVITY DISORDER
     Dosage: 20 MG, QID, ORAL, 20 MG, TID, ORAL
     Route: 048
     Dates: end: 20070101
  2. ADDERALL 10 [Suspect]
     Indication: ATTENTION DEFICIT/HYPERACTIVITY DISORDER
     Dosage: 20 MG, QID, ORAL, 20 MG, TID, ORAL
     Route: 048
     Dates: start: 19990101
  3. INSULIN (INSULIN) [Concomitant]
  4. METFORMIN [Concomitant]
  5. GLIPIZIDE [Concomitant]
  6. LITHIUM CARBONATE [Concomitant]

REACTIONS (7)
  - CONTUSION [None]
  - DRUG WITHDRAWAL SYNDROME [None]
  - HEPATIC HAEMORRHAGE [None]
  - HEPATITIS C [None]
  - HOMICIDAL IDEATION [None]
  - PSYCHOTIC DISORDER [None]
  - SELF-INJURIOUS IDEATION [None]
